FAERS Safety Report 8227315-3 (Version None)
Quarter: 2012Q1

REPORT INFORMATION
  Report Type: 
  Country: None (occurrence: None)
  Receive Date: 20120322
  Receipt Date: 20120319
  Transmission Date: 20120608
  Serious: Yes (Hospitalization)
  Sender: FDA-Public Use
  Company Number: PHHY2012RS024231

PATIENT
  Age: 82 Year
  Sex: Female

DRUGS (1)
  1. CARBAMAZEPINE [Suspect]
     Dosage: UNK UKN, UNK

REACTIONS (11)
  - B-CELL LYMPHOMA [None]
  - LYMPHOCYTOSIS [None]
  - LYMPHADENOPATHY [None]
  - RASH MACULO-PAPULAR [None]
  - THROMBOCYTOSIS [None]
  - DRUG RASH WITH EOSINOPHILIA AND SYSTEMIC SYMPTOMS [None]
  - PYREXIA [None]
  - RASH [None]
  - LEUKOCYTOSIS [None]
  - EOSINOPHILIA [None]
  - SPLENOMEGALY [None]
